FAERS Safety Report 13587279 (Version 4)
Quarter: 2017Q4

REPORT INFORMATION
  Report Type: Report from Study
  Country: US (occurrence: BR)
  Receive Date: 20170526
  Receipt Date: 20171006
  Transmission Date: 20180320
  Serious: Yes (Other)
  Sender: FDA-Public Use
  Company Number: US-SUNOVION-2017SUN002194

PATIENT
  Sex: Female

DRUGS (4)
  1. SPIRIVA [Concomitant]
     Active Substance: TIOTROPIUM BROMIDE MONOHYDRATE
     Dosage: UNK
  2. INDACATEROL AND GLYCOPYRROLATE [Suspect]
     Active Substance: GLYCOPYRROLATE\INDACATEROL MALEATE
     Indication: EMPHYSEMA
     Dosage: 1 DF, QD (GLYCOPYRRONIUM BROMIDE 50UG + INDACATEROL 110UG)
     Route: 055
  3. LEUCOGEN [Concomitant]
     Active Substance: LEUCOGEN
     Dosage: UNK
  4. METFORMIN [Concomitant]
     Active Substance: METFORMIN HYDROCHLORIDE
     Dosage: UNK

REACTIONS (22)
  - Renal cancer [Unknown]
  - Dyspnoea [Unknown]
  - Overweight [Unknown]
  - Anxiety [Unknown]
  - Blood uric acid increased [Unknown]
  - Pain [Unknown]
  - Metabolic disorder [Unknown]
  - Fibromyalgia [Unknown]
  - Osteomalacia [Unknown]
  - Fluid retention [Unknown]
  - Swelling [Unknown]
  - Spinal disorder [Unknown]
  - Memory impairment [Unknown]
  - Throat irritation [Unknown]
  - Stress [Unknown]
  - Arthralgia [Unknown]
  - Laryngeal oedema [Unknown]
  - Weight decreased [Unknown]
  - Blood cholesterol increased [Unknown]
  - Blood triglycerides increased [Unknown]
  - Tendonitis [Unknown]
  - Cough [Unknown]
